FAERS Safety Report 13574808 (Version 4)
Quarter: 2018Q1

REPORT INFORMATION
  Report Type: Spontaneous
  Country: CH (occurrence: CH)
  Receive Date: 20170523
  Receipt Date: 20180102
  Transmission Date: 20180508
  Serious: Yes (Other)
  Sender: FDA-Public Use
  Company Number: CH-GILEAD-2017-0273490

PATIENT
  Age: 31 Year
  Sex: Female

DRUGS (3)
  1. EVIPLERA [Suspect]
     Active Substance: EMTRICITABINE\RILPIVIRINE\TENOFOVIR DISOPROXIL FUMARATE
     Indication: HIV INFECTION
     Dosage: 1 DF, QD
     Route: 048
     Dates: start: 201304
  2. ASPIRIN CARDIO [Suspect]
     Active Substance: ASPIRIN
     Indication: CARDIAC VALVE PROSTHESIS USER
     Dosage: 100 MG, QD
     Route: 048
  3. BELOC                              /00376903/ [Suspect]
     Active Substance: METOPROLOL TARTRATE
     Indication: CARDIAC VALVE PROSTHESIS USER
     Dosage: 25 MG, QD
     Route: 048

REACTIONS (1)
  - Maternal exposure during pregnancy [Recovered/Resolved]

NARRATIVE: CASE EVENT DATE: 20170317
